FAERS Safety Report 25848336 (Version 1)
Quarter: 2025Q3

REPORT INFORMATION
  Report Type: Spontaneous
  Country: CN (occurrence: CN)
  Receive Date: 20250925
  Receipt Date: 20250925
  Transmission Date: 20251020
  Serious: Yes (Disabling)
  Sender: ELI LILLY AND COMPANY
  Company Number: CN-Merck Healthcare KGaA-2025047168

PATIENT
  Age: 53 Year
  Sex: Female
  Weight: 59 kg

DRUGS (2)
  1. ERBITUX [Suspect]
     Active Substance: CETUXIMAB
     Indication: Colorectal cancer
     Route: 065
  2. ERBITUX [Suspect]
     Active Substance: CETUXIMAB
     Route: 041
     Dates: start: 20250828, end: 20250828

REACTIONS (1)
  - Palmar-plantar erythrodysaesthesia syndrome [Unknown]

NARRATIVE: CASE EVENT DATE: 20250911
